FAERS Safety Report 5578829-6 (Version None)
Quarter: 2008Q1

REPORT INFORMATION
  Report Type: 
  Country: None (occurrence: None)
  Receive Date: 20080102
  Receipt Date: 20071221
  Transmission Date: 20080703
  Serious: Yes (Other)
  Sender: FDA-Public Use
  Company Number: US-ROCHE-538217

PATIENT
  Sex: Female

DRUGS (2)
  1. BONIVA [Suspect]
     Indication: DRUG USE FOR UNKNOWN INDICATION
     Route: 065
  2. BONIVA [Suspect]
     Route: 065
     Dates: start: 20070801

REACTIONS (3)
  - GENERAL SYMPTOM [None]
  - HAEMORRHAGE [None]
  - NAUSEA [None]
